FAERS Safety Report 8599440 (Version 2)
Quarter: 2012Q4

REPORT INFORMATION
  Report Type: 
  Country: IT (occurrence: IT)
  Receive Date: 20120605
  Receipt Date: 20120910
  Transmission Date: 20130627
  Serious: Yes (Hospitalization, Other)
  Sender: FDA-Public Use
  Company Number: IT-ABBOTT-12P-083-0939715-00

PATIENT
  Age: 48 Year
  Sex: Male

DRUGS (4)
  1. NORVIR TABLETS [Suspect]
     Indication: ANTIRETROVIRAL THERAPY
     Dosage: QD
     Route: 048
     Dates: start: 20110101, end: 20110305
  2. REYATAZ [Suspect]
     Indication: ANTIRETROVIRAL THERAPY
     Route: 048
     Dates: start: 20110101, end: 20110305
  3. TRUVADA [Suspect]
     Indication: ANTIRETROVIRAL THERAPY
     Dosage: QD
     Route: 048
     Dates: start: 20110101, end: 20110305
  4. FOY [Concomitant]
     Indication: PRODUCT USED FOR UNKNOWN INDICATION
     Dosage: 10 days
     Route: 042

REACTIONS (4)
  - Renal failure acute [Recovered/Resolved]
  - Haemolytic uraemic syndrome [Unknown]
  - Acquired immunodeficiency syndrome [Unknown]
  - Pancreatitis acute [Unknown]
